FAERS Safety Report 8775938 (Version 2)
Quarter: 2013Q4

REPORT INFORMATION
  Report Type: Spontaneous
  Country: CA (occurrence: CA)
  Receive Date: 20120910
  Receipt Date: 20131105
  Transmission Date: 20140711
  Serious: Yes (Other)
  Sender: FDA-Public Use
  Company Number: CA-MERCK-1209CAN003560

PATIENT
  Age: 37 Year
  Sex: Female
  Weight: 66 kg

DRUGS (3)
  1. SAPHRIS [Suspect]
     Indication: BIPOLAR DISORDER
     Dosage: 5 MG, QD
     Route: 060
     Dates: start: 20120330, end: 20120330
  2. ZOPICLONE [Concomitant]
     Indication: SLEEP DISORDER THERAPY
     Dosage: 7.5 MG, HS
     Route: 048
  3. PRISTIQ [Concomitant]
     Indication: ANTIDEPRESSANT THERAPY
     Dosage: 50 MG, BID
     Route: 048

REACTIONS (5)
  - Swollen tongue [Recovered/Resolved]
  - Pharyngeal oedema [Recovered/Resolved]
  - Nasal oedema [Recovered/Resolved]
  - Panic attack [Recovered/Resolved]
  - Underdose [Recovered/Resolved]
